FAERS Safety Report 6644744-X (Version None)
Quarter: 2010Q1

REPORT INFORMATION
  Report Type: 
  Country: None (occurrence: None)
  Receive Date: 20100318
  Receipt Date: 20100318
  Transmission Date: 20100710
  Serious: Yes (Hospitalization)
  Sender: FDA-Public Use
  Company Number: None

PATIENT
  Age: 60 Year
  Sex: Male
  Weight: 83 kg

DRUGS (1)
  1. DIATRIZOATE [Suspect]
     Indication: FISTULOGRAM
     Dosage: ML ONCE IV
     Route: 042
     Dates: start: 20091203, end: 20091203

REACTIONS (3)
  - ANGIOEDEMA [None]
  - DYSPHAGIA [None]
  - URTICARIA [None]
